FAERS Safety Report 24936568 (Version 1)
Quarter: 2025Q1

REPORT INFORMATION
  Report Type: Spontaneous
  Country: FR (occurrence: FR)
  Receive Date: 20250206
  Receipt Date: 20250206
  Transmission Date: 20250409
  Serious: Yes (Other)
  Sender: RANBAXY
  Company Number: FR-SUN PHARMACEUTICAL INDUSTRIES LTD-2025RR-492707

PATIENT
  Age: 63 Year
  Sex: Female

DRUGS (2)
  1. CIPROFLOXACIN [Suspect]
     Active Substance: CIPROFLOXACIN
     Indication: Sepsis
     Dosage: 1 DOSAGE FORM, DAILY
     Route: 065
     Dates: start: 20230215
  2. CEFAZOLIN [Suspect]
     Active Substance: CEFAZOLIN
     Indication: Sepsis
     Dosage: 1 DOSAGE FORM, DAILY
     Route: 040
     Dates: start: 20230201, end: 20230215

REACTIONS (1)
  - Purpura [Not Recovered/Not Resolved]

NARRATIVE: CASE EVENT DATE: 20230218
